FAERS Safety Report 25481463 (Version 1)
Quarter: 2025Q2

REPORT INFORMATION
  Report Type: Report from Study
  Country: CA (occurrence: CA)
  Receive Date: 20250626
  Receipt Date: 20250626
  Transmission Date: 20250716
  Serious: Yes (Other)
  Sender: ABBVIE
  Company Number: CA-ABBVIE-6340960

PATIENT
  Sex: Female

DRUGS (1)
  1. RINVOQ [Suspect]
     Active Substance: UPADACITINIB
     Indication: Rheumatoid arthritis
     Route: 048

REACTIONS (7)
  - Root canal infection [Unknown]
  - Tooth abscess [Unknown]
  - Facial pain [Unknown]
  - Neck pain [Unknown]
  - COVID-19 [Unknown]
  - Gastroenteritis [Unknown]
  - Illness [Unknown]
